FAERS Safety Report 23694323 (Version 2)
Quarter: 2024Q3

REPORT INFORMATION
  Report Type: Spontaneous
  Country: DE (occurrence: DE)
  Receive Date: 20240401
  Receipt Date: 20240718
  Transmission Date: 20241017
  Serious: Yes (Other)
  Sender: SANDOZ
  Company Number: DE-BRISTOL-MYERS SQUIBB COMPANY-2024-043166

PATIENT
  Age: 71 Year
  Sex: Male
  Weight: 107 kg

DRUGS (34)
  1. CARBOPLATIN [Suspect]
     Active Substance: CARBOPLATIN
     Dosage: 580 AUC - MG/MIN*ML
     Route: 040
     Dates: start: 20240116
  2. CARBOPLATIN [Suspect]
     Active Substance: CARBOPLATIN
     Dosage: 580 AUC - MG/MIN*ML
     Route: 040
     Dates: start: 20240206
  3. CARBOPLATIN [Suspect]
     Active Substance: CARBOPLATIN
     Dosage: 580 AUC - MG/MIN*ML
     Route: 040
     Dates: start: 20240227
  4. CARBOPLATIN [Suspect]
     Active Substance: CARBOPLATIN
     Indication: Non-small cell lung cancer
     Dosage: 580 AUC - MG/MIN*ML
     Route: 042
     Dates: start: 20240227
  5. CARBOPLATIN [Suspect]
     Active Substance: CARBOPLATIN
     Dosage: 580 AUC - MG/MIN*ML
     Route: 042
     Dates: start: 20240116
  6. CARBOPLATIN [Suspect]
     Active Substance: CARBOPLATIN
     Dosage: 580 AUC - MG/MIN*ML
     Route: 042
     Dates: start: 20240206
  7. DEXAMETHASONE [Suspect]
     Active Substance: DEXAMETHASONE
     Dosage: 16.000MG QD
     Route: 042
     Dates: start: 20240116, end: 20240116
  8. DEXAMETHASONE [Suspect]
     Active Substance: DEXAMETHASONE
     Dosage: 16.000MG QD
     Route: 042
     Dates: start: 20240206, end: 20240206
  9. DEXAMETHASONE [Suspect]
     Active Substance: DEXAMETHASONE
     Dosage: 16.000MG QD
     Route: 042
     Dates: start: 20240227, end: 20240227
  10. DEXAMETHASONE [Suspect]
     Active Substance: DEXAMETHASONE
     Indication: Prophylaxis
     Dosage: 8.000MG QD
     Route: 048
     Dates: start: 20240207, end: 20240208
  11. DEXAMETHASONE [Suspect]
     Active Substance: DEXAMETHASONE
     Dosage: 8.000MG QD
     Route: 048
     Dates: start: 20240117, end: 20240118
  12. DEXAMETHASONE [Suspect]
     Active Substance: DEXAMETHASONE
     Dosage: 8.000MG QD
     Route: 048
     Dates: start: 20240228, end: 20240229
  13. NIVOLUMAB [Suspect]
     Active Substance: NIVOLUMAB
     Indication: Non-small cell lung cancer
     Dosage: 360.000MG
     Route: 042
     Dates: start: 20240116
  14. PACLITAXEL [Suspect]
     Active Substance: PACLITAXEL
     Indication: Non-small cell lung cancer
     Dosage: 400.000MG/M2
     Route: 042
     Dates: start: 20240227
  15. PACLITAXEL [Suspect]
     Active Substance: PACLITAXEL
     Dosage: 400.000MG/M2
     Route: 042
     Dates: start: 20240116
  16. PACLITAXEL [Suspect]
     Active Substance: PACLITAXEL
     Dosage: 400.000MG/M2
     Route: 042
     Dates: start: 20240206
  17. ALLOPURINOL [Concomitant]
     Active Substance: ALLOPURINOL
     Indication: Prophylaxis
     Dosage: 300 MG
     Route: 048
     Dates: start: 20231001
  18. CANDESARTAN [Concomitant]
     Active Substance: CANDESARTAN
     Indication: Hypertension
     Dosage: 16.000MG QD
     Route: 048
     Dates: start: 20090101
  19. CHOLECALCIFEROL [Concomitant]
     Active Substance: CHOLECALCIFEROL
     Indication: Prophylaxis
     Dosage: UNK, QD
     Route: 048
     Dates: start: 20240425
  20. CYANOCOBALAMIN [Concomitant]
     Active Substance: CYANOCOBALAMIN
     Indication: Prophylaxis
     Dosage: UNK
     Route: 048
     Dates: start: 20240425
  21. DIMETHINDENE MALEATE [Concomitant]
     Active Substance: DIMETHINDENE MALEATE
     Indication: Prophylaxis
     Dosage: DOSE: 1 AMP
     Route: 042
     Dates: start: 20240116, end: 20240116
  22. DIMETHINDENE MALEATE [Concomitant]
     Active Substance: DIMETHINDENE MALEATE
     Dosage: DOSE: 1 AMP
     Route: 042
     Dates: start: 20240206, end: 20240206
  23. DIMETHINDENE MALEATE [Concomitant]
     Active Substance: DIMETHINDENE MALEATE
     Dosage: DOSE: 1 AMP
     Route: 042
     Dates: start: 20240227, end: 20240227
  24. METAMIZOLE [Concomitant]
     Active Substance: METAMIZOLE
     Indication: Prophylaxis
     Dosage: UNK (0.33  DAY)
     Route: 048
     Dates: start: 20240425
  25. METOCLOPRAMIDE [Concomitant]
     Active Substance: METOCLOPRAMIDE
     Indication: Prophylaxis
     Dosage: 10.000MG
     Route: 048
     Dates: start: 20240206, end: 20240214
  26. METOCLOPRAMIDE [Concomitant]
     Active Substance: METOCLOPRAMIDE
     Dosage: 10.000MG
     Route: 048
     Dates: start: 20240227, end: 20240305
  27. NALOXONE HYDROCHLORIDE [Concomitant]
     Active Substance: NALOXONE HYDROCHLORIDE
     Indication: Prophylaxis
     Dosage: UNK, BID (0.5 DAY)
     Route: 048
     Dates: start: 20240425, end: 20240523
  28. NETUPITANT\PALONOSETRON [Concomitant]
     Active Substance: NETUPITANT\PALONOSETRON
     Indication: Prophylaxis
     Dosage: 300 MG QD
     Route: 048
     Dates: start: 20240227, end: 20240227
  29. NETUPITANT\PALONOSETRON [Concomitant]
     Active Substance: NETUPITANT\PALONOSETRON
     Dosage: 300.000MG QD
     Route: 048
     Dates: start: 20240116, end: 20240116
  30. NETUPITANT\PALONOSETRON [Concomitant]
     Active Substance: NETUPITANT\PALONOSETRON
     Dosage: 300.000MG QD
     Route: 048
     Dates: start: 20240206, end: 20240206
  31. ONDANSETRON [Concomitant]
     Active Substance: ONDANSETRON
     Indication: Prophylaxis
     Dosage: AS NEEDED
     Route: 034
     Dates: start: 20240206, end: 20240228
  32. OXYCODONE [Concomitant]
     Active Substance: OXYCODONE
     Indication: Prophylaxis
     Dosage: UNK
     Route: 048
     Dates: start: 20240425, end: 20240429
  33. PANTOPRAZOLE [Concomitant]
     Active Substance: PANTOPRAZOLE
     Indication: Prophylaxis
     Dosage: 20.000MG
     Route: 048
     Dates: start: 20240101
  34. PYRIDOXINE [Concomitant]
     Active Substance: PYRIDOXINE
     Indication: Prophylaxis
     Dosage: UNK
     Route: 048
     Dates: start: 20240425

REACTIONS (2)
  - Autoimmune myositis [Recovered/Resolved]
  - Insomnia [Recovered/Resolved]

NARRATIVE: CASE EVENT DATE: 20240227
